FAERS Safety Report 4401978-2 (Version None)
Quarter: 2004Q3

REPORT INFORMATION
  Report Type: 
  Country: None (occurrence: None)
  Receive Date: 20040714
  Receipt Date: 20040630
  Transmission Date: 20050211
  Serious: Yes (Hospitalization)
  Sender: FDA-Public Use
  Company Number: USA030126418

PATIENT
  Age: 8 Year
  Sex: Male
  Weight: 31 kg

DRUGS (1)
  1. STRATTERA [Suspect]
     Indication: ATTENTION DEFICIT/HYPERACTIVITY DISORDER
     Dosage: 25 MG/DAY
     Dates: start: 20030113, end: 20030115

REACTIONS (8)
  - ASPARTATE AMINOTRANSFERASE INCREASED [None]
  - BLOOD LACTATE DEHYDROGENASE INCREASED [None]
  - BODY TEMPERATURE INCREASED [None]
  - DRUG HYPERSENSITIVITY [None]
  - HEADACHE [None]
  - HEPATIC ENZYME INCREASED [None]
  - PAIN [None]
  - PAIN IN EXTREMITY [None]
